FAERS Safety Report 15765351 (Version 2)
Quarter: 2019Q2

REPORT INFORMATION
  Report Type: Report from Study
  Country: US (occurrence: US)
  Receive Date: 20181227
  Receipt Date: 20190624
  Transmission Date: 20190711
  Serious: Yes (Other)
  Sender: FDA-Public Use
  Company Number: US-SAKK-2018SA394006AA

PATIENT
  Age: 70 Year
  Sex: Female

DRUGS (2)
  1. ALIROCUMAB [Suspect]
     Active Substance: ALIROCUMAB
     Indication: BLOOD CHOLESTEROL
     Dosage: 150 MG, QOW
     Route: 058
     Dates: start: 20180617
  2. ALIROCUMAB [Suspect]
     Active Substance: ALIROCUMAB
     Dosage: 75 MG, QOW
     Route: 058
     Dates: start: 201905

REACTIONS (4)
  - Diplopia [Not Recovered/Not Resolved]
  - Angina pectoris [Unknown]
  - Cataract [Not Recovered/Not Resolved]
  - Low density lipoprotein decreased [Unknown]

NARRATIVE: CASE EVENT DATE: 20181210
